FAERS Safety Report 5404469-5 (Version None)
Quarter: 2007Q3

REPORT INFORMATION
  Report Type: 
  Country: None (occurrence: None)
  Receive Date: 20070713
  Receipt Date: 20070322
  Transmission Date: 20080115
  Serious: Yes (Hospitalization)
  Sender: FDA-Public Use
  Company Number: US-JNJFOC-20061202789

PATIENT
  Age: 41 Year
  Sex: Female
  Weight: 93.8946 kg

DRUGS (6)
  1. ORTHO EVRA [Suspect]
     Indication: CONTRACEPTION
     Dosage: TRANSDERMAL
     Route: 062
     Dates: start: 20040301, end: 20040425
  2. METHADONE HCL [Concomitant]
  3. BEXTRA (BUCINDOLOL HYDROCHLORIDE) [Concomitant]
  4. WELLBUTRIN [Concomitant]
  5. SKELAXIN [Concomitant]
  6. AMBIEN [Concomitant]

REACTIONS (1)
  - PULMONARY EMBOLISM [None]
